FAERS Safety Report 16112653 (Version 2)
Quarter: 2019Q2

REPORT INFORMATION
  Report Type: Spontaneous
  Country: US (occurrence: US)
  Receive Date: 20190325
  Receipt Date: 20190503
  Transmission Date: 20190711
  Serious: No
  Sender: FDA-Public Use
  Company Number: US-AMGEN-USASP2019041733

PATIENT
  Age: 43 Year
  Sex: Male
  Weight: 79 kg

DRUGS (7)
  1. SENSIPAR [Suspect]
     Active Substance: CINACALCET HYDROCHLORIDE
     Indication: HYPERPARATHYROIDISM SECONDARY
     Dosage: 30 MILLIGRAM, QD
     Route: 048
     Dates: start: 20160614, end: 20181015
  2. PARSABIV [Suspect]
     Active Substance: ETELCALCETIDE HYDROCHLORIDE
     Indication: HYPERPARATHYROIDISM SECONDARY
     Dosage: 2.5 MILLIGRAM, 3 TIMES/WK WITH DIALYSIS
     Route: 042
     Dates: start: 20181024, end: 20190128
  3. SENSIPAR [Suspect]
     Active Substance: CINACALCET HYDROCHLORIDE
     Dosage: 120 MILLIGRAM, 3 TIMES/WK AT THE END OF DIALYSIS
     Route: 065
  4. PARSABIV [Suspect]
     Active Substance: ETELCALCETIDE HYDROCHLORIDE
     Dosage: 5 MILLIGRAM, 3 TIMES/WK WITH DIALYSIS
     Route: 065
     Dates: end: 20190128
  5. CALCITONE [Concomitant]
     Indication: HYPERPARATHYROIDISM SECONDARY
     Dosage: 0.5 MICROGRAM, 3 TIMES/WK
     Dates: start: 20181123
  6. PARSABIV [Suspect]
     Active Substance: ETELCALCETIDE HYDROCHLORIDE
     Dosage: 7.5 MILLIGRAM, 3 TIMES/WK WITH DIALYSIS
     Route: 065
  7. SENSIPAR [Suspect]
     Active Substance: CINACALCET HYDROCHLORIDE
     Dosage: 150 MILLIGRAM, Q3WK
     Route: 048

REACTIONS (3)
  - Drug ineffective [Unknown]
  - Underdose [Unknown]
  - Drug hypersensitivity [Unknown]
